FAERS Safety Report 22009377 (Version 2)
Quarter: 2023Q1

REPORT INFORMATION
  Report Type: Spontaneous
  Country: US (occurrence: US)
  Receive Date: 20230220
  Receipt Date: 20230324
  Transmission Date: 20230417
  Serious: No
  Sender: FDA-Public Use
  Company Number: US-JNJFOC-20230227668

PATIENT
  Age: 30 Year
  Sex: Female

DRUGS (2)
  1. STELARA [Suspect]
     Active Substance: USTEKINUMAB
     Indication: Product used for unknown indication
     Dosage: AT WEEK 0
     Route: 058
  2. STELARA [Suspect]
     Active Substance: USTEKINUMAB

REACTIONS (3)
  - Underdose [Unknown]
  - Syringe issue [Unknown]
  - Injection site erythema [Unknown]

NARRATIVE: CASE EVENT DATE: 20230201
